FAERS Safety Report 25259851 (Version 1)
Quarter: 2025Q2

REPORT INFORMATION
  Report Type: Spontaneous
  Country: US (occurrence: None)
  Receive Date: 20250430
  Receipt Date: 20250430
  Transmission Date: 20250716
  Serious: Yes (Disabling)
  Sender: FDA-CTU
  Company Number: None

PATIENT
  Age: 79 Year
  Sex: Female
  Weight: 54 kg

DRUGS (15)
  1. VABYSMO [Suspect]
     Active Substance: FARICIMAB-SVOA
     Indication: Neovascular age-related macular degeneration
     Dates: start: 20241212
  2. MODAFINIL [Concomitant]
     Active Substance: MODAFINIL
  3. FEXOFENADINE [Concomitant]
     Active Substance: FEXOFENADINE HYDROCHLORIDE
  4. DILTIAZEM [Concomitant]
     Active Substance: DILTIAZEM
  5. HERBALS\TURMERIC [Concomitant]
     Active Substance: HERBALS\TURMERIC
  6. AREDS2 [Concomitant]
  7. MENAQUINONE 6 [Concomitant]
     Active Substance: MENAQUINONE 6
  8. ZINC [Concomitant]
     Active Substance: ZINC
  9. MAGNESIUM GLYCINATE [Concomitant]
     Active Substance: MAGNESIUM GLYCINATE
  10. VITAMIN D3 [Concomitant]
     Active Substance: CHOLECALCIFEROL
  11. FOLIC ACID [Concomitant]
     Active Substance: FOLIC ACID
  12. PYRIDOXINE HYDROCHLORIDE [Concomitant]
     Active Substance: PYRIDOXINE HYDROCHLORIDE
  13. B12 [Concomitant]
  14. DIMETHYL SULFONE [Concomitant]
     Active Substance: DIMETHYL SULFONE
  15. HYALURONIC ACID [Concomitant]
     Active Substance: HYALURONIC ACID

REACTIONS (8)
  - Lacrimation increased [None]
  - Rhinorrhoea [None]
  - Swelling face [None]
  - Swollen tongue [None]
  - Anaphylactic shock [None]
  - Blood pressure increased [None]
  - Hypersensitivity [None]
  - Vomiting projectile [None]

NARRATIVE: CASE EVENT DATE: 20241212
